FAERS Safety Report 13290675 (Version 1)
Quarter: 2017Q1

REPORT INFORMATION
  Report Type: Spontaneous
  Country: DE (occurrence: DE)
  Receive Date: 20170303
  Receipt Date: 20170303
  Transmission Date: 20170428
  Serious: Yes (Other)
  Sender: FDA-Public Use
  Company Number: DE-TEVA-742171GER

PATIENT
  Age: 1 Day
  Sex: Male
  Weight: 2.25 kg

DRUGS (2)
  1. FEMIBION [Concomitant]
     Active Substance: VITAMINS
     Indication: PROPHYLAXIS OF NEURAL TUBE DEFECT
     Route: 064
     Dates: start: 20160114, end: 20160920
  2. PREDNISOLON [Suspect]
     Active Substance: PREDNISOLONE
     Indication: EXTRAOCULAR MUSCLE DISORDER
     Dosage: 40 MG/D  DOSAGE REDUCTION FROM WEEK 7 TO 20 AND LATER 10 MG/D
     Route: 064
     Dates: start: 20160114, end: 20160920

REACTIONS (4)
  - Thrombocytopenia neonatal [Unknown]
  - Neonatal infection [Recovered/Resolved]
  - Foetal exposure during pregnancy [Unknown]
  - Hypoglycaemia neonatal [Recovered/Resolved]

NARRATIVE: CASE EVENT DATE: 20160920
